FAERS Safety Report 12326344 (Version 1)
Quarter: 2016Q2

REPORT INFORMATION
  Report Type: Spontaneous
  Country: US (occurrence: None)
  Receive Date: 20160502
  Receipt Date: 20160502
  Transmission Date: 20160815
  Serious: Yes (Life-Threatening)
  Sender: FDA-Public Use
  Company Number: None

PATIENT
  Age: 52 Year
  Sex: Female
  Weight: 79.83 kg

DRUGS (6)
  1. NIFEDIPINE ER [Suspect]
     Active Substance: NIFEDIPINE
     Indication: HYPERTENSION
     Route: 048
     Dates: start: 20160430, end: 20160430
  2. LISINOPRIL. [Concomitant]
     Active Substance: LISINOPRIL
  3. ENZYME [Concomitant]
  4. LOVASTATIN. [Concomitant]
     Active Substance: LOVASTATIN
  5. COENZYME [Concomitant]
     Active Substance: UBIDECARENONE
  6. FAMOTIDINE. [Concomitant]
     Active Substance: FAMOTIDINE

REACTIONS (1)
  - Tachycardia [None]

NARRATIVE: CASE EVENT DATE: 20160430
